FAERS Safety Report 9834400 (Version 1)
Quarter: 2014Q1

REPORT INFORMATION
  Report Type: Spontaneous
  Country: US (occurrence: US)
  Receive Date: 20140122
  Receipt Date: 20140122
  Transmission Date: 20141002
  Serious: Yes (Death)
  Sender: FDA-Public Use
  Company Number: US-GE HEALTHCARE MEDICAL DIAGNOSTICS-OSCN-PR-0811S-0597

PATIENT
  Age: 57 Year
  Sex: Female

DRUGS (5)
  1. OMNISCAN [Suspect]
     Indication: RENAL CELL CARCINOMA
     Dates: start: 20000331, end: 20000331
  2. OMNISCAN [Suspect]
     Indication: VON HIPPEL-LINDAU DISEASE
     Dates: start: 20010411, end: 20010411
  3. OMNISCAN [Suspect]
     Indication: RENAL CYST
     Dates: start: 20020401, end: 20020401
  4. EPOGEN [Concomitant]
  5. SYNTHROID [Concomitant]

REACTIONS (1)
  - Nephrogenic systemic fibrosis [Fatal]
